FAERS Safety Report 13157217 (Version 2)
Quarter: 2017Q1

REPORT INFORMATION
  Report Type: Report from Study
  Country: JP (occurrence: JP)
  Receive Date: 20170127
  Receipt Date: 20170217
  Transmission Date: 20170428
  Serious: Yes (Hospitalization, Other)
  Sender: FDA-Public Use
  Company Number: JP-AMGEN-JPNSP2017013767

PATIENT
  Age: 72 Year
  Sex: Female

DRUGS (7)
  1. CINACALCET HCL [Suspect]
     Active Substance: CINACALCET HYDROCHLORIDE
     Dosage: 25 MG, QD
     Route: 048
     Dates: start: 20160509, end: 20160515
  2. CINACALCET HCL [Suspect]
     Active Substance: CINACALCET HYDROCHLORIDE
     Dosage: 21.4 MG, QD
     Route: 048
     Dates: start: 20160502, end: 20160508
  3. CINACALCET HCL [Suspect]
     Active Substance: CINACALCET HYDROCHLORIDE
     Dosage: 50 MG, QD
     Route: 048
     Dates: start: 20151221, end: 20151221
  4. CINACALCET HCL [Suspect]
     Active Substance: CINACALCET HYDROCHLORIDE
     Dosage: 50 MG, QD
     Route: 048
     Dates: start: 20160516
  5. CINACALCET HCL [Suspect]
     Active Substance: CINACALCET HYDROCHLORIDE
     Dosage: 25 MG, QD
     Route: 048
     Dates: start: 20160229, end: 20160412
  6. CINACALCET HCL [Suspect]
     Active Substance: CINACALCET HYDROCHLORIDE
     Indication: HYPERPARATHYROIDISM SECONDARY
     Dosage: 25 MG, QD
     Route: 048
     Dates: start: 20151130, end: 20151220
  7. CINACALCET HCL [Suspect]
     Active Substance: CINACALCET HYDROCHLORIDE
     Dosage: 37.5 MG, QD
     Route: 048
     Dates: start: 20160118, end: 20160209

REACTIONS (8)
  - Peripheral arterial occlusive disease [Not Recovered/Not Resolved]
  - Adjusted calcium decreased [Recovered/Resolved]
  - Adjusted calcium decreased [Recovered/Resolved]
  - Atrial fibrillation [Recovered/Resolved]
  - Adjusted calcium decreased [Recovered/Resolved]
  - Nausea [Recovered/Resolved]
  - Conjunctivitis [Recovered/Resolved]
  - Adjusted calcium decreased [Recovered/Resolved]

NARRATIVE: CASE EVENT DATE: 20151130
